APPROVED DRUG PRODUCT: HYDROCODONE BITARTRATE AND ACETAMINOPHEN
Active Ingredient: ACETAMINOPHEN; HYDROCODONE BITARTRATE
Strength: 325MG/15ML;7.5MG/15ML
Dosage Form/Route: SOLUTION;ORAL
Application: A040482 | Product #001
Applicant: CHARTWELL SCHEDULED LLC
Approved: Sep 25, 2003 | RLD: No | RS: No | Type: DISCN